FAERS Safety Report 6969308-X (Version None)
Quarter: 2010Q3

REPORT INFORMATION
  Report Type: 
  Country: None (occurrence: None)
  Receive Date: 20100907
  Receipt Date: 20100831
  Transmission Date: 20110219
  Serious: Yes (Hospitalization, Other)
  Sender: FDA-Public Use
  Company Number: US-SANOFI-AVENTIS-A03200701697

PATIENT
  Age: 64 Year
  Sex: Male
  Weight: 98.88 kg

DRUGS (16)
  1. CLOPIDOGREL BISULFATE [Suspect]
     Dosage: UNIT DOSE: 75 MG
     Route: 048
     Dates: start: 20040904, end: 20050222
  2. ASPIRIN [Suspect]
     Route: 048
     Dates: start: 20040901, end: 20050222
  3. NITROGLYCERIN [Concomitant]
  4. COLACE [Concomitant]
  5. PREVACID [Concomitant]
  6. LANOXIN [Concomitant]
  7. ATENOLOL [Concomitant]
  8. AMIODARONE [Concomitant]
  9. CELEXA [Concomitant]
  10. CATAPRES /UNK/ [Concomitant]
  11. ZOCOR [Concomitant]
  12. LORTAB [Concomitant]
  13. HYDROCHLOROTHIAZIDE [Concomitant]
  14. K-DUR [Concomitant]
     Route: 048
  15. MULTI-VITAMINS [Concomitant]
  16. FLONASE [Concomitant]

REACTIONS (7)
  - ATRIAL FIBRILLATION [None]
  - BLOOD PRESSURE INCREASED [None]
  - CEREBRAL HAEMORRHAGE [None]
  - CONDITION AGGRAVATED [None]
  - DIZZINESS [None]
  - NAUSEA [None]
  - VERTIGO [None]
